FAERS Safety Report 8759444 (Version 1)
Quarter: 2012Q4

REPORT INFORMATION
  Report Type: Report from Study
  Country: US (occurrence: US)
  Receive Date: 20120829
  Receipt Date: 20120829
  Transmission Date: 20130627
  Serious: Yes (Death)
  Sender: FDA-Public Use
  Company Number: US-ROCHE-1109893

PATIENT
  Sex: Female

DRUGS (2)
  1. XELODA [Suspect]
     Indication: CERVIX CARCINOMA
     Route: 048
     Dates: start: 20120227
  2. TARCEVA [Suspect]
     Indication: CERVIX CARCINOMA
     Route: 048

REACTIONS (1)
  - Death [Fatal]
